FAERS Safety Report 7903364-7 (Version None)
Quarter: 2011Q4

REPORT INFORMATION
  Report Type: 
  Country: None (occurrence: None)
  Receive Date: 20111109
  Receipt Date: 20111108
  Transmission Date: 20120403
  Serious: Yes (Other)
  Sender: FDA-Public Use
  Company Number: SG-SANOFI-AVENTIS-2011SA073087

PATIENT
  Age: 15 Year
  Sex: Female

DRUGS (4)
  1. FAMOTIDINE [Suspect]
     Route: 065
  2. NAPROXEN [Suspect]
     Route: 065
  3. DANZEN [Suspect]
     Route: 065
  4. FEXOFENADINE HCL [Suspect]
     Route: 065

REACTIONS (1)
  - FACE OEDEMA [None]
